FAERS Safety Report 4891238-8 (Version None)
Quarter: 2006Q1

REPORT INFORMATION
  Report Type: 
  Country: None (occurrence: None)
  Receive Date: 20060125
  Receipt Date: 20051101
  Transmission Date: 20060701
  Serious: Yes (Hospitalization, Other)
  Sender: FDA-Public Use
  Company Number: 2005SE06283

PATIENT
  Age: 31850 Day
  Sex: Male

DRUGS (10)
  1. FUROSEMIDE [Suspect]
     Indication: CARDIAC FAILURE
     Dosage: TOTAL DAILY DOSE: 120 MG ORAL
     Route: 048
  2. PLACEBO [Suspect]
     Indication: CARDIAC FAILURE CHRONIC
     Route: 048
     Dates: start: 20040427
  3. TROMBYL [Concomitant]
     Indication: ANGINA PECTORIS
     Route: 048
     Dates: start: 20040406
  4. METOPROLOL SUCCINATE [Concomitant]
     Indication: CARDIAC FAILURE
     Route: 048
  5. COZAAR [Concomitant]
     Indication: CARDIAC FAILURE
     Route: 048
     Dates: start: 20040406
  6. GLYTRIN [Concomitant]
     Indication: ANGINA PECTORIS
     Route: 060
     Dates: start: 20040406
  7. ALVEDON [Concomitant]
     Indication: ARTHRALGIA
     Route: 048
  8. ALVEDON [Concomitant]
     Indication: GOUT
     Route: 048
  9. ANAFRANIL [Concomitant]
     Indication: DEPRESSION
     Dosage: TOTAL DAILY DOSE: 100 MG ORAL
     Route: 048
     Dates: start: 20050417
  10. BETNOVAT [Concomitant]
     Indication: ECZEMA
     Route: 003
     Dates: start: 20050414

REACTIONS (1)
  - POLYARTHRITIS [None]
